FAERS Safety Report 24941989 (Version 1)
Quarter: 2025Q1

REPORT INFORMATION
  Report Type: Report from Study
  Country: MX (occurrence: MX)
  Receive Date: 20250207
  Receipt Date: 20250207
  Transmission Date: 20250409
  Serious: Yes (Other)
  Sender: JOHNSON AND JOHNSON
  Company Number: MX-JNJFOC-20250190205

PATIENT
  Age: 31 Year
  Sex: Female

DRUGS (2)
  1. SIMPONI [Suspect]
     Active Substance: GOLIMUMAB
     Indication: Psoriatic arthropathy
  2. METHOTREXATE [Concomitant]
     Active Substance: METHOTREXATE
     Indication: Psoriatic arthropathy
     Route: 048

REACTIONS (3)
  - Gastroenteritis [Recovered/Resolved]
  - Productive cough [Recovered/Resolved]
  - Laboratory test abnormal [Recovered/Resolved]

NARRATIVE: CASE EVENT DATE: 20250101
